FAERS Safety Report 14199683 (Version 1)
Quarter: 2017Q4

REPORT INFORMATION
  Report Type: Spontaneous
  Country: ES (occurrence: ES)
  Receive Date: 20171117
  Receipt Date: 20171117
  Transmission Date: 20180321
  Serious: Yes (Other)
  Sender: FDA-Public Use
  Company Number: ES-BAYER-2017-215266

PATIENT
  Age: 49 Year
  Sex: Male

DRUGS (2)
  1. NEXAVAR [Suspect]
     Active Substance: SORAFENIB
     Indication: HEPATOCELLULAR CARCINOMA
     Dosage: 400 MG, BID
     Route: 048
     Dates: start: 20170322, end: 201707
  2. NEXAVAR [Suspect]
     Active Substance: SORAFENIB
     Indication: HEPATOCELLULAR CARCINOMA
     Dosage: 600 MG DAILY,(400 MG IN THE MORNING AND 200 MG AT NIGHT)
     Route: 048
     Dates: start: 201707

REACTIONS (18)
  - Nausea [Unknown]
  - Gastrointestinal motility disorder [None]
  - Ascites [Recovered/Resolved]
  - Diarrhoea [Recovered/Resolved]
  - Hypophagia [Unknown]
  - Nausea [Unknown]
  - Diarrhoea [Unknown]
  - Weight decreased [Unknown]
  - Asthenia [Unknown]
  - Depressed mood [Unknown]
  - Acute kidney injury [Recovering/Resolving]
  - Abdominal pain [None]
  - Vomiting [Unknown]
  - Decreased appetite [Unknown]
  - Diarrhoea [Recovering/Resolving]
  - Vomiting [Unknown]
  - Muscle atrophy [Unknown]
  - Decreased appetite [Unknown]

NARRATIVE: CASE EVENT DATE: 201704
